FAERS Safety Report 4411771-2 (Version None)
Quarter: 2004Q3

REPORT INFORMATION
  Report Type: 
  Country: None (occurrence: None)
  Receive Date: 20040728
  Receipt Date: 20040713
  Transmission Date: 20050211
  Serious: Yes (Hospitalization)
  Sender: FDA-Public Use
  Company Number: USA040566573

PATIENT
  Age: 50 Year
  Sex: Male

DRUGS (2)
  1. CUAKUS (TADALAFIL) [Suspect]
     Dosage: 20 MG
     Dates: start: 20040501
  2. VENTOLIN [Concomitant]

REACTIONS (3)
  - MEDICATION ERROR [None]
  - PAINFUL ERECTION [None]
  - SELF-MEDICATION [None]
